FAERS Safety Report 10047395 (Version 1)
Quarter: 2014Q1

REPORT INFORMATION
  Report Type: Spontaneous
  Country: US (occurrence: None)
  Receive Date: 20140328
  Receipt Date: 20140328
  Transmission Date: 20141002
  Serious: Yes (Other)
  Sender: FDA-Public Use
  Company Number: None

PATIENT
  Age: 65 Year
  Sex: Male
  Weight: 110.5 kg

DRUGS (1)
  1. LATANOPROST [Suspect]
     Indication: GLAUCOMA
     Dosage: 1 DROPS  EVERY DAY  EYE?~03/10/2014 THRU ~03/10/2014
     Dates: start: 20140310, end: 20140310

REACTIONS (2)
  - Treatment failure [None]
  - Ocular hyperaemia [None]
